FAERS Safety Report 6121223-X (Version None)
Quarter: 2009Q1

REPORT INFORMATION
  Report Type: 
  Country: None (occurrence: None)
  Receive Date: 20090313
  Receipt Date: 20090303
  Transmission Date: 20090719
  Serious: Yes (Hospitalization, Other)
  Sender: FDA-Public Use
  Company Number: 2008AL001920

PATIENT
  Age: 43 Year
  Sex: Female

DRUGS (12)
  1. CITALOPRAM HYDROBROMIDE [Suspect]
     Indication: DEPRESSION
     Dosage: 20 MG; PO
     Route: 048
     Dates: start: 20060101, end: 20080128
  2. TOLTERODINE [Concomitant]
  3. METOCLOPRAMIDE [Concomitant]
  4. ASCORBIC ACID [Concomitant]
  5. TIZANIDINE HCL [Concomitant]
  6. TRIMETHOPRIM [Concomitant]
  7. LANSOPRAZOLE [Concomitant]
  8. SENNA [Concomitant]
  9. PYRIDOXINE [Concomitant]
  10. DANTROLENE SODIUM [Concomitant]
  11. CARBAMAZEPINE [Concomitant]
  12. PROPANTHELINE [Concomitant]

REACTIONS (1)
  - HYPONATRAEMIA [None]
